FAERS Safety Report 9145434 (Version 1)
Quarter: 2013Q1

REPORT INFORMATION
  Report Type: Spontaneous
  Country: US (occurrence: None)
  Receive Date: 20130226
  Receipt Date: 20130226
  Transmission Date: 20140127
  Serious: Yes (Other)
  Sender: FDA-Public Use
  Company Number: None

PATIENT
  Sex: Female

DRUGS (1)
  1. OCTREOTIDE [Suspect]
     Dosage: 200 MCG Q12 HOURS SUBQ
     Route: 058
     Dates: start: 201211, end: 20130206

REACTIONS (1)
  - Diarrhoea [None]
